FAERS Safety Report 9322135 (Version 2)
Quarter: 2013Q2

REPORT INFORMATION
  Report Type: Spontaneous
  Country: US (occurrence: None)
  Receive Date: 20130528
  Receipt Date: 20130611
  Transmission Date: 20140414
  Serious: Yes (Hospitalization, Other)
  Sender: FDA-Public Use
  Company Number: US-ZYDUS-001175

PATIENT
  Age: 70 Year
  Sex: Male

DRUGS (1)
  1. RAMIPRIL [Suspect]

REACTIONS (3)
  - Angioedema [None]
  - Dysphagia [None]
  - C1 esterase inhibitor decreased [None]
